FAERS Safety Report 12986196 (Version 1)
Quarter: 2016Q4

REPORT INFORMATION
  Report Type: Spontaneous
  Country: US (occurrence: US)
  Receive Date: 20161128
  Receipt Date: 20161128
  Transmission Date: 20170207
  Serious: Yes (Other)
  Sender: FDA-Public Use
  Company Number: None

PATIENT
  Age: 26 Year
  Sex: Female

DRUGS (1)
  1. MIRENA [Suspect]
     Active Substance: LEVONORGESTREL
     Dosage: ?          QUANTITY:THING?.I N I. .\.;?

REACTIONS (21)
  - Memory impairment [None]
  - Acne cystic [None]
  - Anxiety [None]
  - Palpitations [None]
  - Libido decreased [None]
  - Hypotension [None]
  - Panic attack [None]
  - Disturbance in attention [None]
  - Hypoaesthesia [None]
  - Adnexa uteri pain [None]
  - Weight increased [None]
  - Burning sensation [None]
  - Migraine [None]
  - Hot flush [None]
  - Depression [None]
  - Dizziness [None]
  - Mood swings [None]
  - Embedded device [None]
  - Complication of device removal [None]
  - Device breakage [None]
  - Uterine injury [None]

NARRATIVE: CASE EVENT DATE: 20100105
